FAERS Safety Report 24076103 (Version 3)
Quarter: 2024Q3

REPORT INFORMATION
  Report Type: Report from Study
  Country: CA (occurrence: CA)
  Receive Date: 20240710
  Receipt Date: 20240812
  Transmission Date: 20241017
  Serious: Yes (Other)
  Sender: TAKEDA
  Company Number: CA-TAKEDA-2017TUS000776

PATIENT
  Age: 67 Year
  Sex: Male

DRUGS (18)
  1. VEDOLIZUMAB [Suspect]
     Active Substance: VEDOLIZUMAB
     Indication: Colitis ulcerative
     Dosage: 300 MILLIGRAM
     Route: 042
     Dates: start: 20160811
  2. VEDOLIZUMAB [Suspect]
     Active Substance: VEDOLIZUMAB
     Dosage: 300 MILLIGRAM, Q6WEEKS
     Route: 042
     Dates: start: 20170223
  3. VEDOLIZUMAB [Suspect]
     Active Substance: VEDOLIZUMAB
     Dosage: 300 MILLIGRAM, Q6WEEKS
     Route: 042
  4. VEDOLIZUMAB [Suspect]
     Active Substance: VEDOLIZUMAB
     Dosage: 300 MILLIGRAM, Q6WEEKS
     Route: 042
  5. VEDOLIZUMAB [Suspect]
     Active Substance: VEDOLIZUMAB
     Dosage: 300 MILLIGRAM, Q4WEEKS
     Route: 042
  6. VEDOLIZUMAB [Suspect]
     Active Substance: VEDOLIZUMAB
     Indication: Colitis ulcerative
     Dosage: UNK
     Route: 058
     Dates: start: 20240606
  7. PANTOPRAZOLE [Concomitant]
     Active Substance: PANTOPRAZOLE
     Indication: Gastrooesophageal reflux disease
     Dosage: 40 MILLIGRAM
     Route: 048
  8. PERINDOPRIL [Concomitant]
     Active Substance: PERINDOPRIL
     Indication: Hypertension
     Dosage: 8 MILLIGRAM
     Route: 048
  9. INDAPAMIDE [Concomitant]
     Active Substance: INDAPAMIDE
     Indication: Hypertension
     Dosage: 1.25 MILLIGRAM, QD
     Route: 048
  10. RAPAFLO [Concomitant]
     Active Substance: SILODOSIN
     Indication: Prostatic disorder
     Dosage: 8 MILLIGRAM
     Route: 048
  11. Salofalk [Concomitant]
     Dosage: UNK, UNK, QD
  12. Salofalk [Concomitant]
     Dosage: 3000 MILLIGRAM
     Route: 048
  13. Salofalk [Concomitant]
     Dosage: 1000 MILLIGRAM
     Route: 055
  14. CORTIFOAM [Concomitant]
     Active Substance: HYDROCORTISONE ACETATE
     Dosage: UNK
     Route: 055
  15. VOLTAREN [Concomitant]
     Active Substance: DICLOFENAC SODIUM
     Dosage: 100 MILLIGRAM
     Route: 048
  16. TYLENOL [Concomitant]
     Active Substance: ACETAMINOPHEN
     Dosage: 650 MILLIGRAM
     Route: 048
  17. ALFORATE [Concomitant]
     Dosage: 220 MILLIGRAM
     Route: 048
  18. PREDNISONE [Concomitant]
     Active Substance: PREDNISONE
     Dosage: UNK
     Route: 048

REACTIONS (2)
  - Colitis ulcerative [Not Recovered/Not Resolved]
  - Off label use [Unknown]

NARRATIVE: CASE EVENT DATE: 20170223
